FAERS Safety Report 5962582-8 (Version None)
Quarter: 2008Q4

REPORT INFORMATION
  Report Type: 
  Country: None (occurrence: None)
  Receive Date: 20081121
  Receipt Date: 20081112
  Transmission Date: 20090506
  Serious: Yes (Other)
  Sender: FDA-Public Use
  Company Number: TR-PFIZER INC-2008096219

PATIENT

DRUGS (1)
  1. LATANOPROST [Suspect]

REACTIONS (2)
  - MACULAR DEGENERATION [None]
  - MACULAR OEDEMA [None]
